FAERS Safety Report 7757320-2 (Version None)
Quarter: 2011Q3

REPORT INFORMATION
  Report Type: 
  Country: None (occurrence: None)
  Receive Date: 20110916
  Receipt Date: 20110907
  Transmission Date: 20111222
  Serious: Yes (Congenital Anomaly, Other)
  Sender: FDA-Public Use
  Company Number: US-PFIZER INC-2011199304

PATIENT
  Sex: Male

DRUGS (2)
  1. ZOLOFT [Suspect]
     Dosage: 100 MG, 1X/DAY
     Route: 064
     Dates: start: 20000106
  2. ZOLOFT [Suspect]
     Dosage: 50 MG, 1X/DAY
     Route: 064
     Dates: start: 20001003

REACTIONS (2)
  - MATERNAL EXPOSURE DURING PREGNANCY [None]
  - CONGENITAL ANOMALY [None]
